FAERS Safety Report 7961542 (Version 2)
Quarter: 2014Q1

REPORT INFORMATION
  Report Type: Spontaneous
  Country: US (occurrence: US)
  Receive Date: 20110526
  Receipt Date: 20140130
  Transmission Date: 20141002
  Serious: Yes (Hospitalization)
  Sender: FDA-Public Use
  Company Number: US-RANBAXY-2011US-44527

PATIENT
  Age: 49 Year
  Sex: Male

DRUGS (2)
  1. DOXYCYCLINE HYDROCHLORIDE [Suspect]
     Indication: COUGH
     Dosage: UNK
     Route: 048
  2. DOXYCYCLINE HYDROCHLORIDE [Suspect]
     Indication: OROPHARYNGEAL PAIN

REACTIONS (2)
  - Stevens-Johnson syndrome [Unknown]
  - Conjunctival hyperaemia [Recovering/Resolving]
